FAERS Safety Report 9963514 (Version 1)
Quarter: 2014Q1

REPORT INFORMATION
  Report Type: Spontaneous
  Country: US (occurrence: US)
  Receive Date: 20140305
  Receipt Date: 20140305
  Transmission Date: 20141002
  Serious: No
  Sender: FDA-Public Use
  Company Number: US-ABBVIE-13P-163-1118257-00

PATIENT
  Sex: 0

DRUGS (1)
  1. HUMIRA [Suspect]
     Indication: PSORIATIC ARTHROPATHY
     Dosage: 2 INJECTIONS RECEIVED TOTAL THUS FAR
     Route: 058
     Dates: start: 2013

REACTIONS (2)
  - Rash pustular [Not Recovered/Not Resolved]
  - Psoriasis [Not Recovered/Not Resolved]
